FAERS Safety Report 9806485 (Version 2)
Quarter: 2014Q1

REPORT INFORMATION
  Report Type: Spontaneous
  Country: US (occurrence: US)
  Receive Date: 20140109
  Receipt Date: 20140109
  Transmission Date: 20141002
  Serious: Yes (Hospitalization)
  Sender: FDA-Public Use
  Company Number: US-SA-2013SA095718

PATIENT
  Age: 72 Year
  Sex: Female

DRUGS (3)
  1. LANTUS SOLOSTAR [Suspect]
     Indication: TYPE 2 DIABETES MELLITUS
     Dosage: DOSE:40 UNIT(S)
     Route: 051
  2. NOVOLOG [Suspect]
     Route: 065
  3. SOLOSTAR [Concomitant]

REACTIONS (5)
  - Adverse event [Unknown]
  - Fall [Unknown]
  - Memory impairment [Unknown]
  - Blood glucose increased [Unknown]
  - Drug dose omission [Unknown]
